FAERS Safety Report 19235612 (Version 3)
Quarter: 2021Q2

REPORT INFORMATION
  Report Type: Spontaneous
  Country: PT (occurrence: PT)
  Receive Date: 20210510
  Receipt Date: 20210518
  Transmission Date: 20210717
  Serious: Yes (Hospitalization, Other)
  Sender: FDA-Public Use
  Company Number: PT-AUROBINDO-AUR-APL-2021-018171

PATIENT
  Age: 60 Year
  Sex: Male

DRUGS (4)
  1. TAMSULOSIN [Concomitant]
     Active Substance: TAMSULOSIN
     Indication: BENIGN PROSTATIC HYPERPLASIA
     Dosage: 0.4 MILLIGRAM
     Route: 048
  2. PREGABALIN. [Concomitant]
     Active Substance: PREGABALIN
     Indication: PRODUCT USED FOR UNKNOWN INDICATION
     Dosage: 150 MILLIGRAM, ONCE A DAY
     Route: 048
  3. ROSUVASTATIN. [Concomitant]
     Active Substance: ROSUVASTATIN
     Indication: DYSLIPIDAEMIA
     Dosage: 5 MILLIGRAM, ONCE A DAY
     Route: 048
  4. CLOZAPINE. [Suspect]
     Active Substance: CLOZAPINE
     Indication: DEPRESSION
     Dosage: 25 MILLIGRAM
     Route: 065

REACTIONS (14)
  - Renal tubular necrosis [Unknown]
  - Haematuria [Unknown]
  - Antineutrophil cytoplasmic antibody positive [Recovered/Resolved]
  - Vasculitis [Unknown]
  - Proteinuria [Unknown]
  - Oedema [Unknown]
  - Oedema peripheral [Unknown]
  - Focal segmental glomerulosclerosis [Unknown]
  - Blood creatinine increased [Unknown]
  - Weight increased [Unknown]
  - Renal tubular injury [Unknown]
  - Nephrotic syndrome [Unknown]
  - Urine output decreased [Unknown]
  - Rash erythematous [Recovered/Resolved]
